FAERS Safety Report 8560067-6 (Version None)
Quarter: 2012Q3

REPORT INFORMATION
  Report Type: 
  Country: None (occurrence: None)
  Receive Date: 20120802
  Receipt Date: 20120725
  Transmission Date: 20120928
  Serious: Yes (Hospitalization, Other)
  Sender: FDA-Public Use
  Company Number: JP-VERTEX PHARMACEUTICALS INC.-AE-2012-009735

PATIENT
  Age: 61 Year
  Sex: Male

DRUGS (11)
  1. SILECE [Concomitant]
     Route: 048
  2. TALION [Concomitant]
     Route: 048
     Dates: start: 20120605, end: 20120621
  3. FAMOTIDINE [Concomitant]
     Route: 048
     Dates: start: 20120605, end: 20120621
  4. TELAVIC (TELAPREVIR) [Suspect]
     Route: 048
     Dates: start: 20120618, end: 20120622
  5. TELAVIC (TELAPREVIR) [Suspect]
     Indication: HEPATITIS C
     Route: 048
     Dates: start: 20120605, end: 20120621
  6. REBETOL [Concomitant]
     Route: 048
     Dates: start: 20120623
  7. AMOBAN [Concomitant]
     Route: 048
  8. DEPAS [Concomitant]
     Route: 048
  9. ALLOPURINOL [Concomitant]
     Route: 048
  10. PEGINTERFERON ALFA-2B [Concomitant]
     Indication: HEPATITIS C
     Route: 058
     Dates: start: 20120605
  11. REBETOL [Concomitant]
     Indication: HEPATITIS C
     Route: 048
     Dates: start: 20120605, end: 20120621

REACTIONS (2)
  - BLOOD CREATININE INCREASED [None]
  - PANCREATITIS ACUTE [None]
